FAERS Safety Report 8550555-0 (Version None)
Quarter: 2012Q3

REPORT INFORMATION
  Report Type: 
  Country: None (occurrence: None)
  Receive Date: 20120730
  Receipt Date: 20120726
  Transmission Date: 20120928
  Serious: Yes (Hospitalization)
  Sender: FDA-Public Use
  Company Number: PHHY2012IT064356

PATIENT
  Sex: Female

DRUGS (9)
  1. AMARYL [Concomitant]
     Dosage: 4 MG
     Route: 048
  2. AMIODARONE HCL [Suspect]
     Indication: ARRHYTHMIA PROPHYLAXIS
     Dosage: 200 MG, DAILY
     Dates: start: 20110610, end: 20120610
  3. BISOPROLOL FUMARATE [Suspect]
     Indication: ARRHYTHMIA PROPHYLAXIS
     Dosage: 2.5 MG, DAILY
     Dates: start: 20110610, end: 20120610
  4. FUROSEMIDE [Concomitant]
     Route: 048
  5. VALPRESSION [Concomitant]
     Dosage: 160 MG
     Route: 048
  6. ATORVASTATIN CALCIUM [Concomitant]
     Dosage: 40 MG
     Route: 048
  7. LEVEMIR [Concomitant]
  8. WARFARIN SODIUM [Suspect]
     Indication: ANTICOAGULANT THERAPY
     Dosage: 5 MG, UPON NEED
     Route: 048
     Dates: start: 20110610, end: 20120610
  9. METFORMIN HYDROCHLORIDE [Concomitant]
     Route: 048

REACTIONS (3)
  - ABDOMINAL PAIN LOWER [None]
  - RECTAL HAEMORRHAGE [None]
  - ATRIOVENTRICULAR BLOCK COMPLETE [None]
